FAERS Safety Report 8338114 (Version 10)
Quarter: 2013Q2

REPORT INFORMATION
  Report Type: Spontaneous
  Country: US (occurrence: US)
  Receive Date: 20120116
  Receipt Date: 20130426
  Transmission Date: 20140414
  Serious: Yes (Death, Other)
  Sender: FDA-Public Use
  Company Number: PHEH2006US015696

PATIENT
  Age: 49 Year
  Sex: Female
  Weight: 99.77 kg

DRUGS (48)
  1. AREDIA [Suspect]
     Indication: PROPHYLAXIS
     Dates: start: 1998, end: 2000
  2. ZOMETA [Suspect]
     Indication: PROPHYLAXIS
     Route: 042
     Dates: start: 2000, end: 20050303
  3. TAMOXIFEN [Suspect]
  4. FARESTON [Concomitant]
  5. COUMADIN [Concomitant]
  6. MULTIVITAMINS [Concomitant]
  7. CALCIUM CARBONATE [Concomitant]
  8. MAGNESIUM CARBONATE [Concomitant]
  9. FOLIC ACID [Concomitant]
  10. ASPIRIN [Concomitant]
  11. FEMARA [Concomitant]
  12. PROZAC [Concomitant]
  13. CELEBREX [Concomitant]
  14. SUDAFED [Concomitant]
  15. ZYRTEC [Concomitant]
  16. CLARITIN [Concomitant]
  17. ARESTIN [Concomitant]
  18. LEVAQUIN [Concomitant]
     Dosage: 500 MG, BID
     Route: 048
  19. CHLORHEXIDINE DENTAL ^ACO^ [Concomitant]
     Dosage: .12 %, TID
     Route: 048
  20. PRILOSEC [Concomitant]
     Dosage: 10 MG, QD
     Route: 048
  21. Z-PAK [Concomitant]
     Dosage: 250 MG, QD
     Route: 048
  22. AMOXICILLIN TRIHYDRATE W/CLAVULANATE POTASS. [Concomitant]
     Route: 048
  23. CEPHALEXIN [Concomitant]
     Dosage: 500 MG, BID
     Route: 048
  24. CIPROFLOXACIN [Concomitant]
     Dosage: 500 MG, BID
     Route: 048
  25. ALPRAZOLAM [Concomitant]
     Dosage: 0.25 MG, QHS
     Route: 048
  26. OXYCODONE/APAP [Concomitant]
     Dosage: 5/325 MG, PRN
     Route: 048
  27. OMEPRAZOLE [Concomitant]
     Dosage: 20 MG, QD
     Route: 048
  28. FLUOXETINE HYDROCHLORIDE [Concomitant]
     Dosage: 20 MG, UNK
     Route: 048
  29. TRAMADOL [Concomitant]
     Dosage: 50 MG, UNK
     Route: 048
  30. METRONIDAZOLE [Concomitant]
     Route: 048
  31. SKELAXIN [Concomitant]
     Dosage: 400 MG, UNK
     Route: 048
  32. CYCLOBENZAPRINE [Concomitant]
     Dosage: 10 MG, UNK
     Route: 048
  33. BETAMETHASONE [Concomitant]
     Route: 048
  34. FISH OIL [Concomitant]
  35. PERCOCET [Concomitant]
  36. LIDOCAINE [Concomitant]
  37. GABAPENTIN [Concomitant]
  38. DIAZEPAM [Concomitant]
  39. KETOROLAC [Concomitant]
  40. CALCIUM [Concomitant]
  41. RADIATION [Concomitant]
  42. COUMADIN ^BOOTS^ [Concomitant]
  43. LORTAB [Concomitant]
  44. CLINDAMYCIN [Concomitant]
  45. AFRIN NASAL SPRAY [Concomitant]
  46. PHENERGAN ^AVENTIS PHARMA^ [Concomitant]
  47. VITAMIN B12 [Concomitant]
  48. NORTRIPTYLINE [Concomitant]

REACTIONS (111)
  - Metastases to lung [Fatal]
  - Breast cancer metastatic [Fatal]
  - Malignant melanoma [Fatal]
  - Deep vein thrombosis [Fatal]
  - Basal cell carcinoma [Unknown]
  - Bone cancer [Unknown]
  - Osteonecrosis of jaw [Recovered/Resolved]
  - Osteomyelitis [Unknown]
  - Bone disorder [Recovered/Resolved]
  - Primary sequestrum [Unknown]
  - Sinus disorder [Unknown]
  - Purulence [Unknown]
  - Tenderness [Unknown]
  - Swelling face [Unknown]
  - Oral disorder [Unknown]
  - Inflammation [Unknown]
  - Sinusitis [Unknown]
  - Dysphagia [Unknown]
  - Nasal congestion [Unknown]
  - Fistula [Unknown]
  - Sinus polyp degeneration [Unknown]
  - Tooth infection [Unknown]
  - Impaired healing [Unknown]
  - Abscess [Unknown]
  - Sensitivity of teeth [Unknown]
  - Tooth disorder [Unknown]
  - Gingival bleeding [Recovering/Resolving]
  - Gingival ulceration [Unknown]
  - Dysgeusia [Unknown]
  - Necrosis [Unknown]
  - Upper-airway cough syndrome [Unknown]
  - Cholelithiasis [Unknown]
  - Abdominal pain [Unknown]
  - Abdominal pain upper [Unknown]
  - Computerised tomogram abnormal [Unknown]
  - Renal cyst [Unknown]
  - Hepatic cyst [Unknown]
  - Carotid artery stenosis [Unknown]
  - Dilatation ventricular [Unknown]
  - Left ventricular hypertrophy [Unknown]
  - Mitral valve incompetence [Unknown]
  - Tricuspid valve incompetence [Unknown]
  - Glaucoma [Unknown]
  - Cataract [Unknown]
  - Vitreous detachment [Unknown]
  - Upper limb fracture [Unknown]
  - Diverticulum [Unknown]
  - Hydronephrosis [Unknown]
  - Arthritis [Unknown]
  - Malignant melanoma in situ [Unknown]
  - Lymphoedema [Unknown]
  - Clavicle fracture [Unknown]
  - Osteoarthritis [Unknown]
  - Rib fracture [Unknown]
  - Mood swings [Unknown]
  - Breast cancer recurrent [Unknown]
  - Chronic obstructive pulmonary disease [Unknown]
  - Bronchiolitis [Unknown]
  - Pleural fibrosis [Unknown]
  - Metastases to bone [Unknown]
  - Renal mass [Unknown]
  - Migraine [Unknown]
  - Memory impairment [Unknown]
  - Metastases to central nervous system [Unknown]
  - Central nervous system lesion [Unknown]
  - Adrenomegaly [Unknown]
  - Hypermetabolism [Unknown]
  - Arthropathy [Unknown]
  - Adrenal mass [Unknown]
  - Intervertebral disc degeneration [Unknown]
  - Lung infiltration [Unknown]
  - Back pain [Not Recovered/Not Resolved]
  - Bursitis [Unknown]
  - Musculoskeletal chest pain [Unknown]
  - Presyncope [Unknown]
  - Hypercholesterolaemia [Unknown]
  - Oral pain [Unknown]
  - Blood pressure systolic increased [Unknown]
  - Large intestine polyp [Unknown]
  - Oedema peripheral [Unknown]
  - Myofascial pain syndrome [Unknown]
  - Musculoskeletal pain [Unknown]
  - Arthralgia [Unknown]
  - Pain in extremity [Unknown]
  - Rotator cuff syndrome [Unknown]
  - Spinal disorder [Unknown]
  - Patellofemoral pain syndrome [Unknown]
  - Chest pain [Unknown]
  - Poor quality sleep [Unknown]
  - Lymphocyte count increased [Unknown]
  - Monocyte count increased [Unknown]
  - Renal cancer [Unknown]
  - Hyperlipidaemia [Unknown]
  - Haematuria [Unknown]
  - Neuropathy peripheral [Unknown]
  - Lymphadenopathy [Unknown]
  - Spinal osteoarthritis [Not Recovered/Not Resolved]
  - Adenocarcinoma [Unknown]
  - Pulmonary embolism [Unknown]
  - Osteoporosis [Unknown]
  - Metastases to adrenals [Unknown]
  - Thrombophlebitis [Unknown]
  - Venous insufficiency [Unknown]
  - Superior vena cava syndrome [Unknown]
  - Constipation [Unknown]
  - Headache [Unknown]
  - Vertigo [Unknown]
  - Weight decreased [Unknown]
  - Vasogenic cerebral oedema [Recovered/Resolved]
  - Chest discomfort [Unknown]
  - Alopecia [Recovered/Resolved]
